FAERS Safety Report 14374022 (Version 1)
Quarter: 2018Q1

REPORT INFORMATION
  Report Type: Spontaneous
  Country: FR (occurrence: FR)
  Receive Date: 20180111
  Receipt Date: 20180111
  Transmission Date: 20180509
  Serious: Yes (Hospitalization)
  Sender: FDA-Public Use
  Company Number: FR-SUN PHARMACEUTICAL INDUSTRIES LTD-2018R1-159381

PATIENT
  Age: 68 Year
  Sex: Male
  Weight: 113 kg

DRUGS (15)
  1. JANUVIA [Concomitant]
     Active Substance: SITAGLIPTIN PHOSPHATE
     Indication: TYPE 2 DIABETES MELLITUS
     Dosage: 1 DF, UNK
     Route: 048
  2. TADENAN 50 MG, CAPSULE MOLLE [Concomitant]
     Indication: BENIGN PROSTATIC HYPERPLASIA
     Dosage: 2 DF, UNK
     Route: 048
     Dates: start: 20170828, end: 20171208
  3. RISPERDAL [Suspect]
     Active Substance: RISPERIDONE
     Indication: PERSONALITY DISORDER
     Dosage: 3 DF, UNK
     Route: 048
  4. LORMETAZEPAM [Suspect]
     Active Substance: LORMETAZEPAM
     Indication: ANXIOLYTIC THERAPY
     Dosage: 1 MG, UNK
     Route: 048
     Dates: start: 20171102
  5. PRAVASTATINE SODIQUE [Concomitant]
     Active Substance: PRAVASTATIN SODIUM
     Indication: DYSLIPIDAEMIA
     Dosage: 1 DF, UNK
     Route: 048
  6. VALSARTAN. [Suspect]
     Active Substance: VALSARTAN
     Indication: HYPERTENSION
     Dosage: 40 MG, UNK
     Route: 048
     Dates: end: 20171207
  7. KIVEXA [Suspect]
     Active Substance: ABACAVIR SULFATE\LAMIVUDINE
     Indication: HIV INFECTION
     Dosage: 1 DF, UNK
     Route: 048
  8. TOVIAZ [Suspect]
     Active Substance: FESOTERODINE FUMARATE
     Indication: URINARY INCONTINENCE
     Dosage: 1 DF, UNK
     Route: 048
     Dates: start: 20171129, end: 20171208
  9. XATRAL LP 10 MG, COMPRIME A LIBERATION PROLONGEE [Suspect]
     Active Substance: ALFUZOSIN
     Indication: BENIGN PROSTATIC HYPERPLASIA
     Dosage: 1 DF, UNK
     Dates: start: 20170828, end: 20171208
  10. ISENTRESS [Suspect]
     Active Substance: RALTEGRAVIR POTASSIUM
     Indication: HIV INFECTION
     Dosage: 2 DF, UNK
     Route: 048
  11. PERMIXON 160 MG, GELULE [Concomitant]
     Indication: BENIGN PROSTATIC HYPERPLASIA
     Dosage: 2 DF, UNK
     Route: 048
  12. REPAGLINIDE. [Concomitant]
     Active Substance: REPAGLINIDE
     Indication: HYPERTENSION
     Dosage: 3 G, UNK
     Route: 048
  13. LEXOMIL ROCHE [Suspect]
     Active Substance: BROMAZEPAM
     Indication: ANXIOLYTIC THERAPY
     Dosage: 1 DF, UNK
     Route: 048
     Dates: start: 201706, end: 20171211
  14. AVODART [Concomitant]
     Active Substance: DUTASTERIDE
     Indication: BENIGN PROSTATIC HYPERPLASIA
     Dosage: 1 DF, UNK
     Route: 048
  15. PAROXETINE. [Concomitant]
     Active Substance: PAROXETINE
     Indication: DEPRESSION
     Dosage: 20 MG, UNK
     Route: 048
     Dates: start: 201706, end: 20171202

REACTIONS (2)
  - Fall [Recovered/Resolved]
  - Vertigo [Recovered/Resolved]

NARRATIVE: CASE EVENT DATE: 20171210
